FAERS Safety Report 11888867 (Version 1)
Quarter: 2016Q1

REPORT INFORMATION
  Report Type: Spontaneous
  Country: AU (occurrence: AU)
  Receive Date: 20160105
  Receipt Date: 20160105
  Transmission Date: 20160526
  Serious: Yes (Life-Threatening)
  Sender: FDA-Public Use
  Company Number: AU-OCTA-GAM39615AU

PATIENT
  Age: 31 Year
  Sex: Male
  Weight: 146 kg

DRUGS (1)
  1. OCTAGAM IMMUNE GLOBULIN (HUMAN) [Suspect]
     Active Substance: HUMAN IMMUNOGLOBULIN G
     Indication: GUILLAIN-BARRE SYNDROME
     Route: 042
     Dates: start: 20151215, end: 20151215

REACTIONS (5)
  - Flushing [Unknown]
  - Hyperhidrosis [Unknown]
  - Bradycardia [Unknown]
  - Tachypnoea [Unknown]
  - Rash [Unknown]

NARRATIVE: CASE EVENT DATE: 20151215
